FAERS Safety Report 7786445-0 (Version None)
Quarter: 2011Q3

REPORT INFORMATION
  Report Type: 
  Country: None (occurrence: None)
  Receive Date: 20110929
  Receipt Date: 20110923
  Transmission Date: 20111222
  Serious: Yes (Other)
  Sender: FDA-Public Use
  Company Number: AT-JNJFOC-20110910333

PATIENT
  Sex: Female
  Weight: 64 kg

DRUGS (10)
  1. XARELTO [Suspect]
     Indication: KNEE ARTHROPLASTY
     Route: 048
     Dates: start: 20110917, end: 20110922
  2. HYPREN PLUS [Concomitant]
  3. XARELTO [Suspect]
     Indication: THROMBOSIS PROPHYLAXIS
     Route: 048
     Dates: start: 20110917, end: 20110922
  4. BISOPROLOL FUMARATE [Concomitant]
  5. REQUIP [Concomitant]
  6. TRAZODONE HCL [Concomitant]
  7. METFORMIN HCL [Concomitant]
  8. LANSOPRAZOLE [Concomitant]
  9. DOLPASSE [Concomitant]
  10. NOVALGIN [Concomitant]

REACTIONS (4)
  - DEEP VEIN THROMBOSIS [None]
  - OEDEMA PERIPHERAL [None]
  - PAIN IN EXTREMITY [None]
  - FEELING HOT [None]
